FAERS Safety Report 6135153-0 (Version None)
Quarter: 2009Q1

REPORT INFORMATION
  Report Type: 
  Country: None (occurrence: None)
  Receive Date: 20090325
  Receipt Date: 20090308
  Transmission Date: 20090719
  Serious: Yes (Hospitalization, Other)
  Sender: FDA-Public Use
  Company Number: 2005S1006882

PATIENT
  Age: 66 Year
  Sex: Female
  Weight: 61.2356 kg

DRUGS (12)
  1. PHOSPHOSODA GINGER LEMON [Suspect]
     Indication: COLONOSCOPY
     Dosage: 90 ML; TOTAL; PO
     Route: 048
     Dates: start: 20041031, end: 20041031
  2. COZAAR [Concomitant]
  3. WELLBUTRIN [Concomitant]
  4. CARDIZEM [Concomitant]
  5. MAVIK [Concomitant]
  6. ACTONEL [Concomitant]
  7. TYLENOL (CAPLET) [Concomitant]
  8. CALCIUM + VITAMIN D [Concomitant]
  9. FOSAMAX [Concomitant]
  10. CELEXA [Concomitant]
  11. PROTONIX /01263201/ [Concomitant]
  12. DIGOXIN [Concomitant]

REACTIONS (7)
  - BLOOD PRESSURE DECREASED [None]
  - DEHYDRATION [None]
  - DIZZINESS [None]
  - DYSSTASIA [None]
  - MUSCLE DISORDER [None]
  - RENAL FAILURE ACUTE [None]
  - RENAL FAILURE CHRONIC [None]
